FAERS Safety Report 16279948 (Version 2)
Quarter: 2019Q2

REPORT INFORMATION
  Report Type: Spontaneous
  Country: US (occurrence: US)
  Receive Date: 20190507
  Receipt Date: 20190521
  Transmission Date: 20190711
  Serious: Yes (Life-Threatening, Hospitalization, Other)
  Sender: FDA-Public Use
  Company Number: US-AUROBINDO-AUR-APL-2019-024542

PATIENT

DRUGS (1)
  1. LOPERAMIDE [Suspect]
     Active Substance: LOPERAMIDE
     Indication: PAIN
     Dosage: }100 MG DAILY
     Route: 065

REACTIONS (12)
  - Dyskinesia [Recovered/Resolved]
  - Atrioventricular block first degree [Recovered/Resolved]
  - Cardiomyopathy [Unknown]
  - Overdose [Unknown]
  - Sinus bradycardia [Recovered/Resolved]
  - Drug abuse [Unknown]
  - Cardiac arrest [Recovered/Resolved]
  - Off label use [Unknown]
  - Arrhythmia [Recovered/Resolved]
  - Cardiotoxicity [Recovered/Resolved]
  - Torsade de pointes [Recovered/Resolved]
  - Mental status changes [Recovered/Resolved]
